FAERS Safety Report 5118361-7 (Version None)
Quarter: 2006Q4

REPORT INFORMATION
  Report Type: 
  Country: None (occurrence: None)
  Receive Date: 20061002
  Receipt Date: 20060920
  Transmission Date: 20070319
  Serious: Yes (Hospitalization, Other)
  Sender: FDA-Public Use
  Company Number: PHEH2006US11982

PATIENT
  Age: 81 Year
  Sex: Female

DRUGS (4)
  1. CLOZARIL [Suspect]
     Indication: BIPOLAR DISORDER
     Dosage: 25 MG, QD
     Route: 048
     Dates: start: 20020101, end: 20060901
  2. HALOPERIDOL TABLETS USP (NGX) [Suspect]
     Dates: end: 20060901
  3. LITHIUM CARBONATE [Concomitant]
  4. CELEBREX [Concomitant]

REACTIONS (5)
  - APHASIA [None]
  - CATATONIA [None]
  - DEPRESSION [None]
  - DYSPNOEA [None]
  - WHITE BLOOD CELL COUNT DECREASED [None]
